FAERS Safety Report 14169338 (Version 1)
Quarter: 2017Q4

REPORT INFORMATION
  Report Type: Spontaneous
  Country: US (occurrence: US)
  Receive Date: 20171107
  Receipt Date: 20171107
  Transmission Date: 20180321
  Serious: Yes (Hospitalization)
  Sender: FDA-Public Use
  Company Number: None

PATIENT
  Age: 64 Year
  Sex: Male
  Weight: 94.5 kg

DRUGS (1)
  1. MULTIHANCE [Suspect]
     Active Substance: GADOBENATE DIMEGLUMINE
     Indication: NUCLEAR MAGNETIC RESONANCE IMAGING
     Route: 042
     Dates: start: 20171018, end: 20171018

REACTIONS (5)
  - Cough [None]
  - Dyspnoea [None]
  - Throat tightness [None]
  - Speech disorder [None]
  - Cardio-respiratory arrest [None]

NARRATIVE: CASE EVENT DATE: 20171018
